FAERS Safety Report 20757482 (Version 2)
Quarter: 2022Q2

REPORT INFORMATION
  Report Type: Spontaneous
  Country: GR (occurrence: GR)
  Receive Date: 20220427
  Receipt Date: 20220622
  Transmission Date: 20220721
  Serious: Yes (Other)
  Sender: FDA-Public Use
  Company Number: GR-BAYER-2022A053829

PATIENT
  Age: 74 Year
  Sex: Male

DRUGS (1)
  1. LEVITRA [Suspect]
     Active Substance: VARDENAFIL HYDROCHLORIDE
     Dosage: UNK
     Route: 048
     Dates: start: 202202

REACTIONS (2)
  - Stevens-Johnson syndrome [Recovered/Resolved]
  - Toxic epidermal necrolysis [None]
